FAERS Safety Report 6080282-3 (Version None)
Quarter: 2009Q1

REPORT INFORMATION
  Report Type: 
  Country: None (occurrence: None)
  Receive Date: 20090217
  Receipt Date: 20090213
  Transmission Date: 20090719
  Serious: Yes (Other)
  Sender: FDA-Public Use
  Company Number: BE-RB-009593-09

PATIENT
  Age: 21 Year
  Sex: Female

DRUGS (2)
  1. SUBUTEX [Suspect]
     Indication: DRUG USE FOR UNKNOWN INDICATION
     Route: 048
  2. SUBUTEX [Suspect]
     Route: 048
     Dates: start: 20080725, end: 20081015

REACTIONS (1)
  - PANCREATIC ENZYMES INCREASED [None]
